FAERS Safety Report 20998817 (Version 3)
Quarter: 2022Q3

REPORT INFORMATION
  Report Type: Report from Study
  Country: CA (occurrence: CA)
  Receive Date: 20220623
  Receipt Date: 20220816
  Transmission Date: 20221027
  Serious: Yes (Death, Other)
  Sender: FDA-Public Use
  Company Number: CA-NOVARTISPH-NVSC2022CA141472

PATIENT
  Age: 65 Year
  Sex: Female

DRUGS (5)
  1. ALPELISIB [Suspect]
     Active Substance: ALPELISIB
     Indication: Uterine cancer
     Dosage: 300 MG, QD
     Route: 048
     Dates: start: 20220303
  2. ALPELISIB [Suspect]
     Active Substance: ALPELISIB
     Indication: Endometrial cancer
     Dosage: 300 MG, QD
     Route: 048
     Dates: start: 20220323, end: 20220419
  3. ZOPICLONE [Concomitant]
     Active Substance: ZOPICLONE
     Indication: Product used for unknown indication
     Dosage: UNK
     Route: 065
  4. AMLODIPINE [Concomitant]
     Active Substance: AMLODIPINE BESYLATE
     Indication: Product used for unknown indication
     Dosage: UNK
     Route: 065
  5. FAMOTIDINE [Concomitant]
     Active Substance: FAMOTIDINE
     Indication: Product used for unknown indication
     Dosage: UNK
     Route: 065

REACTIONS (5)
  - Uterine cancer [Fatal]
  - Malignant neoplasm progression [Fatal]
  - Endometrial cancer [Fatal]
  - Hyperglycaemia [Recovered/Resolved]
  - Perforation [Unknown]

NARRATIVE: CASE EVENT DATE: 20220416
